FAERS Safety Report 4513629-7 (Version None)
Quarter: 2004Q4

REPORT INFORMATION
  Report Type: 
  Country: None (occurrence: None)
  Receive Date: 20041130
  Receipt Date: 20040816
  Transmission Date: 20050328
  Serious: No
  Sender: FDA-Public Use
  Company Number: US-GLAXOSMITHKLINE-A0522265A

PATIENT
  Age: 53 Year
  Sex: Female

DRUGS (9)
  1. WELLBUTRIN XL [Suspect]
     Indication: DEPRESSION
     Dosage: 300MG PER DAY
     Route: 048
     Dates: start: 20040601
  2. ZOLOFT [Concomitant]
  3. ALPRAZOLAM [Concomitant]
  4. BEXTRA [Concomitant]
  5. ALBUTEROL [Concomitant]
  6. ZYRTEC [Concomitant]
  7. ASTELIN [Concomitant]
  8. FLONASE [Concomitant]
  9. TEMAZEPAM [Concomitant]

REACTIONS (3)
  - LYMPHADENOPATHY [None]
  - PRURITUS [None]
  - RASH [None]
